FAERS Safety Report 6089906-8 (Version None)
Quarter: 2009Q1

REPORT INFORMATION
  Report Type: 
  Country: None (occurrence: None)
  Receive Date: 20090224
  Receipt Date: 20081121
  Transmission Date: 20090719
  Serious: No
  Sender: FDA-Public Use
  Company Number: US-ABBOTT-08P-163-0489214-00

PATIENT
  Sex: Male
  Weight: 71.732 kg

DRUGS (8)
  1. SIMCOR [Suspect]
     Indication: BLOOD CHOLESTEROL INCREASED
     Dosage: 500/20 MG, ONCE DAILY
     Route: 048
     Dates: start: 20080801, end: 20081107
  2. SIMCOR [Suspect]
     Dosage: 500/20 MG, TWICE DAILY
     Route: 048
     Dates: start: 20081108
  3. FEXOFENADINE [Concomitant]
     Indication: HYPERSENSITIVITY
     Route: 045
  4. TERAZOSIN HCL [Concomitant]
     Indication: URINARY INCONTINENCE
     Route: 048
  5. FLUTICASONE PROPIONATE [Concomitant]
     Indication: HYPERSENSITIVITY
     Route: 045
  6. LEVOTHYROXINE SODIUM [Concomitant]
     Indication: HYPOTHYROIDISM
     Route: 048
  7. HYDROCHLOROTHIAZIDE [Concomitant]
     Indication: HYPERTENSION
     Dosage: 300/25 MG, ONCE DAILY
     Route: 048
  8. ACETYLSALICYLIC ACID SRT [Concomitant]
     Indication: DRUG USE FOR UNKNOWN INDICATION
     Route: 050

REACTIONS (1)
  - FLUSHING [None]
